FAERS Safety Report 7916179-0 (Version None)
Quarter: 2011Q4

REPORT INFORMATION
  Report Type: 
  Country: None (occurrence: None)
  Receive Date: 20111116
  Receipt Date: 20110209
  Transmission Date: 20120403
  Serious: Yes (Other)
  Sender: FDA-Public Use
  Company Number: US-BAYER-201032729NA

PATIENT
  Sex: Female
  Weight: 59 kg

DRUGS (2)
  1. IBUPROFEN (ADVIL) [Concomitant]
     Dosage: UNK
     Dates: start: 20080101, end: 20081201
  2. YAZ [Suspect]
     Indication: CONTRACEPTION
     Dosage: UNK UNK, QD
     Route: 048
     Dates: start: 20080901, end: 20081201

REACTIONS (11)
  - DECREASED APPETITE [None]
  - POST THROMBOTIC SYNDROME [None]
  - VENOUS INSUFFICIENCY [None]
  - FATIGUE [None]
  - OEDEMA PERIPHERAL [None]
  - THROMBOPHLEBITIS SUPERFICIAL [None]
  - DEEP VEIN THROMBOSIS [None]
  - SLEEP DISORDER [None]
  - SKIN WARM [None]
  - HYPERAESTHESIA [None]
  - PAIN IN EXTREMITY [None]
